FAERS Safety Report 10486757 (Version 1)
Quarter: 2014Q3

REPORT INFORMATION
  Report Type: Spontaneous
  Country: US (occurrence: None)
  Receive Date: 20140930
  Receipt Date: 20140930
  Transmission Date: 20150326
  Serious: Yes (Hospitalization)
  Sender: FDA-Public Use
  Company Number: None

PATIENT
  Age: 52 Year
  Sex: Male
  Weight: 124.1 kg

DRUGS (1)
  1. METHIMAZOLE. [Suspect]
     Active Substance: METHIMAZOLE
     Indication: HYPERTHYROIDISM
     Route: 048
     Dates: start: 20140617, end: 20140630

REACTIONS (10)
  - Nausea [None]
  - Pyrexia [None]
  - Drug-induced liver injury [None]
  - Pruritus [None]
  - Chills [None]
  - Abdominal discomfort [None]
  - Chromaturia [None]
  - Hepatic enzyme increased [None]
  - Vomiting [None]
  - Faeces pale [None]

NARRATIVE: CASE EVENT DATE: 20140630
